FAERS Safety Report 7177395-1 (Version None)
Quarter: 2010Q4

REPORT INFORMATION
  Report Type: 
  Country: None (occurrence: None)
  Receive Date: 20101220
  Receipt Date: 20101208
  Transmission Date: 20110411
  Serious: Yes (Other)
  Sender: FDA-Public Use
  Company Number: US-ELI_LILLY_AND_COMPANY-US201002006157

PATIENT
  Sex: Female

DRUGS (7)
  1. FORTEO [Suspect]
     Indication: OSTEOPOROSIS
     Dosage: 20 UG, DAILY (1/D)
     Dates: start: 20090601
  2. FORTEO [Suspect]
     Dosage: UNK, UNKNOWN
  3. METHOTREXATE [Concomitant]
     Dosage: UNK, UNKNOWN
     Route: 065
  4. SYNTHROID [Concomitant]
     Dosage: UNK, UNKNOWN
     Route: 065
  5. CALCIUM [Concomitant]
     Dosage: UNK, UNKNOWN
     Route: 065
  6. MULTI-VITAMIN [Concomitant]
     Dosage: UNK, UNKNOWN
     Route: 065
  7. FOLIC ACID [Concomitant]
     Dosage: UNK, UNKNOWN
     Route: 065

REACTIONS (3)
  - BREAST CANCER [None]
  - INJECTION SITE ERYTHEMA [None]
  - WHITE BLOOD CELL COUNT DECREASED [None]
